FAERS Safety Report 5815643-8 (Version None)
Quarter: 2008Q3

REPORT INFORMATION
  Report Type: 
  Country: None (occurrence: None)
  Receive Date: 20080716
  Receipt Date: 20080701
  Transmission Date: 20090109
  Serious: Yes (Death, Hospitalization)
  Sender: FDA-Public Use
  Company Number: 2008BI014525

PATIENT
  Age: 58 Year
  Sex: Male
  Weight: 66 kg

DRUGS (6)
  1. ZEVALIN [Suspect]
     Indication: DIFFUSE LARGE B-CELL LYMPHOMA
     Dosage: 32 MCI; 1X; IV
     Route: 042
     Dates: start: 20060830, end: 20060906
  2. NEXIUM [Concomitant]
  3. RITUXAN [Concomitant]
  4. VANCOMYCIN HCL [Concomitant]
  5. MEROPENEM [Concomitant]
  6. FLAGYL [Concomitant]

REACTIONS (21)
  - ABSCESS [None]
  - ACUTE RESPIRATORY DISTRESS SYNDROME [None]
  - ANXIETY [None]
  - ASCITES [None]
  - ATRIAL FIBRILLATION [None]
  - BLOOD LACTATE DEHYDROGENASE INCREASED [None]
  - CARDIAC ARREST [None]
  - DIFFUSE LARGE B-CELL LYMPHOMA RECURRENT [None]
  - HYPERGAMMAGLOBULINAEMIA BENIGN MONOCLONAL [None]
  - HYPOCALCAEMIA [None]
  - HYPONATRAEMIA [None]
  - HYPOTENSION [None]
  - HYPOXIA [None]
  - INTESTINAL OBSTRUCTION [None]
  - INTESTINAL PERFORATION [None]
  - MENINGEAL DISORDER [None]
  - PLEURAL EFFUSION [None]
  - PNEUMONIA ADENOVIRAL [None]
  - PNEUMOPERITONEUM [None]
  - SEPSIS [None]
  - SPINAL DISORDER [None]
